FAERS Safety Report 23035768 (Version 1)
Quarter: 2023Q4

REPORT INFORMATION
  Report Type: Spontaneous
  Country: IL (occurrence: IL)
  Receive Date: 20231006
  Receipt Date: 20231006
  Transmission Date: 20240109
  Serious: Yes (Hospitalization, Other)
  Sender: FDA-Public Use
  Company Number: IL-ALKEM LABORATORIES LIMITED-IL-ALKEM-2023-11739

PATIENT
  Age: 91 Year
  Sex: Male

DRUGS (1)
  1. MINOCYCLINE [Suspect]
     Active Substance: MINOCYCLINE HYDROCHLORIDE
     Indication: Pemphigoid
     Dosage: 200 MG/DAY
     Route: 065

REACTIONS (3)
  - Chylothorax [Recovered/Resolved]
  - Lupus-like syndrome [Recovering/Resolving]
  - Pleural effusion [Recovered/Resolved]
